FAERS Safety Report 16105364 (Version 1)
Quarter: 2019Q1

REPORT INFORMATION
  Report Type: Spontaneous
  Country: US (occurrence: US)
  Receive Date: 20190322
  Receipt Date: 20190322
  Transmission Date: 20190418
  Serious: No
  Sender: FDA-Public Use
  Company Number: PHEH2019US011177

PATIENT
  Sex: Female

DRUGS (2)
  1. YOUPLUS VITAMIN C [Concomitant]
     Indication: PRODUCT USED FOR UNKNOWN INDICATION
     Dosage: UNK
     Route: 065
  2. CHOLESTYRAMINE FOR ORAL SUSPENSION USP [Suspect]
     Active Substance: CHOLESTYRAMINE
     Indication: BILE OUTPUT ABNORMAL
     Dosage: 4 G, QD
     Route: 048
     Dates: start: 20190215, end: 20190225

REACTIONS (7)
  - Peripheral swelling [Recovering/Resolving]
  - Asthenia [Recovering/Resolving]
  - Headache [Recovering/Resolving]
  - Mental disorder [Recovering/Resolving]
  - Fatigue [Recovering/Resolving]
  - Muscle fatigue [Recovering/Resolving]
  - Constipation [Recovering/Resolving]
